FAERS Safety Report 5288773-X (Version None)
Quarter: 2007Q2

REPORT INFORMATION
  Report Type: 
  Country: None (occurrence: None)
  Receive Date: 20070405
  Receipt Date: 20070402
  Transmission Date: 20071010
  Serious: Yes (Hospitalization)
  Sender: FDA-Public Use
  Company Number: DE-SANOFI-SYNTHELABO-F04200700021

PATIENT
  Sex: Female

DRUGS (6)
  1. TAXOTERE [Suspect]
     Indication: NEOPLASM MALIGNANT
     Route: 041
     Dates: start: 20060714, end: 20060714
  2. FOLINIC ACID [Suspect]
     Indication: NEOPLASM MALIGNANT
     Route: 041
     Dates: start: 20060714, end: 20060714
  3. FLUOROURACIL [Suspect]
     Indication: NEOPLASM MALIGNANT
     Route: 041
     Dates: start: 20060714, end: 20060714
  4. ELOXATIN [Suspect]
     Indication: NEOPLASM MALIGNANT
     Route: 041
     Dates: start: 20060714, end: 20060714
  5. GRANISETRON [Concomitant]
     Indication: PREMEDICATION
     Route: 065
     Dates: start: 20060701, end: 20060701
  6. DEXAMETHASONE [Concomitant]
     Indication: PREMEDICATION
     Route: 065
     Dates: start: 20060701, end: 20060701

REACTIONS (3)
  - ASTHENIA [None]
  - FATIGUE [None]
  - GENERAL PHYSICAL HEALTH DETERIORATION [None]
